FAERS Safety Report 4777311-3 (Version None)
Quarter: 2005Q3

REPORT INFORMATION
  Report Type: 
  Country: None (occurrence: None)
  Receive Date: 20050922
  Receipt Date: 20050922
  Transmission Date: 20060218
  Serious: No
  Sender: FDA-Public Use
  Company Number: None

PATIENT
  Age: 69 Year
  Sex: Male
  Weight: 87.1 kg

DRUGS (6)
  1. VYTORIN [Suspect]
     Indication: DYSLIPIDAEMIA
     Dosage: 80/10   QD   PO
     Route: 048
     Dates: start: 20050522, end: 20050901
  2. ALLOPURINOL [Concomitant]
  3. RANITIDINE [Concomitant]
  4. ASPIRIN [Concomitant]
  5. PREDNISONE [Concomitant]
  6. FOSAMAX [Concomitant]

REACTIONS (3)
  - ARTHRALGIA [None]
  - BLOOD CREATINE PHOSPHOKINASE INCREASED [None]
  - FATIGUE [None]
